FAERS Safety Report 26189466 (Version 1)
Quarter: 2025Q4

REPORT INFORMATION
  Report Type: Spontaneous
  Country: EU (occurrence: EU)
  Receive Date: 20251223
  Receipt Date: 20251223
  Transmission Date: 20260117
  Serious: Yes (Other)
  Sender: RK PHARMA
  Company Number: EU-RK PHARMA, INC-20251200190

PATIENT
  Age: 61 Year
  Sex: Female

DRUGS (2)
  1. MITOMYCIN [Suspect]
     Active Substance: MITOMYCIN
     Indication: Glaucoma surgery
     Dosage: 0.02 PERCENT, SINGLE
     Route: 031
  2. MITOMYCIN [Suspect]
     Active Substance: MITOMYCIN
     Dosage: 0.04 PERCENT, SINGLE
     Route: 031

REACTIONS (1)
  - Glaucoma drainage device exposure [Recovered/Resolved]
